FAERS Safety Report 11274091 (Version 2)
Quarter: 2015Q3

REPORT INFORMATION
  Report Type: Report from Study
  Country: CA (occurrence: CA)
  Receive Date: 20150715
  Receipt Date: 20150918
  Transmission Date: 20151125
  Serious: Yes (Other)
  Sender: FDA-Public Use
  Company Number: CA-GLAXOSMITHKLINE INC.-CA2015GSK074811

PATIENT
  Sex: Female
  Weight: 7 kg

DRUGS (2)
  1. DABRAFENIB [Suspect]
     Active Substance: DABRAFENIB
     Indication: BRAIN NEOPLASM
     Dosage: 12 MG, BID
     Route: 048
     Dates: start: 20150424, end: 20150715
  2. DABRAFENIB [Suspect]
     Active Substance: DABRAFENIB
     Dosage: 15 MG, BID
     Route: 048
     Dates: start: 20150716

REACTIONS (19)
  - Electrocardiogram QT prolonged [Recovered/Resolved]
  - Hyponatraemia [Recovered/Resolved]
  - Pyrexia [Recovered/Resolved]
  - Eczema [Unknown]
  - Rash pruritic [Unknown]
  - Weight decreased [Recovered/Resolved]
  - Hypophosphataemia [Recovered/Resolved]
  - Hypoalbuminaemia [Recovered/Resolved]
  - Leukocytosis [Recovered/Resolved]
  - Urine albumin/creatinine ratio increased [Not Recovered/Not Resolved]
  - Hyperglycaemia [Recovered/Resolved]
  - Pyrexia [Recovered/Resolved]
  - Lymphopenia [Recovered/Resolved]
  - Tachycardia [Recovered/Resolved]
  - Vomiting [Recovered/Resolved]
  - Tachycardia [Recovered/Resolved]
  - Influenza like illness [Recovered/Resolved]
  - Lethargy [Unknown]
  - Ascites [Recovered/Resolved]

NARRATIVE: CASE EVENT DATE: 20150424
